FAERS Safety Report 7004086-X (Version None)
Quarter: 2010Q3

REPORT INFORMATION
  Report Type: 
  Country: None (occurrence: None)
  Receive Date: 20100920
  Receipt Date: 20100128
  Transmission Date: 20110219
  Serious: No
  Sender: FDA-Public Use
  Company Number: US-WYE-H13276410

PATIENT
  Sex: Male

DRUGS (4)
  1. PRISTIQ [Suspect]
     Route: 048
     Dates: start: 20091231
  2. STRATTERA [Concomitant]
  3. MOBIC [Concomitant]
  4. ABILIFY [Concomitant]

REACTIONS (1)
  - RASH [None]
